FAERS Safety Report 5123617-8 (Version None)
Quarter: 2006Q4

REPORT INFORMATION
  Report Type: 
  Country: None (occurrence: None)
  Receive Date: 20060910
  Receipt Date: 20060302
  Transmission Date: 20070319
  Serious: Yes (Hospitalization)
  Sender: FDA-Public Use
  Company Number: US200603000866

PATIENT
  Age: 60 Year
  Sex: Male

DRUGS (10)
  1. HUMULIN 70/30 [Suspect]
     Dosage: SEE IMAGE
     Dates: start: 20060201
  2. HUMULIN R [Suspect]
     Indication: DIABETES MELLITUS
     Dosage: SEE IMAGE
  3. HUMULIN L [Suspect]
     Indication: DIABETES MELLITUS
     Dates: end: 20060101
  4. HUMALOG [Suspect]
     Indication: DIABETES MELLITUS
  5. HUMULIN U [Suspect]
     Indication: DIABETES MELLITUS
  6. INSULIN, ANIMAL(INSULIN, ANIMAL) VIAL [Suspect]
     Indication: DIABETES MELLITUS
  7. INSULIN, ANIMAL(INSULIN, ANIMAL) [Suspect]
     Indication: DIABETES MELLITUS
     Dates: start: 19530101
  8. VALSARTAN [Concomitant]
  9. AMLODIPINE BESYLATE [Concomitant]
  10. CRESTOR [Concomitant]

REACTIONS (6)
  - BLOOD CHOLESTEROL INCREASED [None]
  - BLOOD GLUCOSE DECREASED [None]
  - BLOOD GLUCOSE INCREASED [None]
  - BLOOD PRESSURE INCREASED [None]
  - KETOACIDOSIS [None]
  - VIRAL INFECTION [None]
